FAERS Safety Report 9409423 (Version 1)
Quarter: 2013Q3

REPORT INFORMATION
  Report Type: Spontaneous
  Country: US (occurrence: US)
  Receive Date: 20130719
  Receipt Date: 20130719
  Transmission Date: 20140515
  Serious: Yes (Hospitalization)
  Sender: FDA-Public Use
  Company Number: 2012P1003999

PATIENT
  Age: 35 Year
  Sex: Female

DRUGS (1)
  1. METRONIDAZOLE [Suspect]
     Indication: ROSACEA
     Route: 061
     Dates: start: 20110926, end: 20111110

REACTIONS (4)
  - Hip fracture [Recovered/Resolved]
  - Rib fracture [Recovered/Resolved]
  - Femur fracture [Recovered/Resolved]
  - Road traffic accident [Recovered/Resolved]
